FAERS Safety Report 25533133 (Version 1)
Quarter: 2025Q3

REPORT INFORMATION
  Report Type: Spontaneous
  Country: EG (occurrence: EG)
  Receive Date: 20250709
  Receipt Date: 20250709
  Transmission Date: 20251020
  Serious: Yes (Other)
  Sender: HIKMA
  Company Number: EG-HIKMA PHARMACEUTICALS-EG-H14001-25-08260

PATIENT
  Age: 60 Year
  Sex: Male
  Weight: 70 kg

DRUGS (3)
  1. CISPLATIN [Suspect]
     Active Substance: CISPLATIN
     Indication: Pancreatic carcinoma
     Route: 065
     Dates: start: 20241008
  2. GEMCITABINE [Suspect]
     Active Substance: GEMCITABINE
     Indication: Pancreatic carcinoma
     Route: 065
     Dates: start: 20241008
  3. CISPLATIN [Suspect]
     Active Substance: CISPLATIN
     Indication: Pancreatic carcinoma
     Route: 041
     Dates: start: 20250430

REACTIONS (1)
  - Laryngospasm [Recovered/Resolved]

NARRATIVE: CASE EVENT DATE: 20250430
